FAERS Safety Report 16713280 (Version 1)
Quarter: 2019Q3

REPORT INFORMATION
  Report Type: Spontaneous
  Country: TR (occurrence: TR)
  Receive Date: 20190818
  Receipt Date: 20190818
  Transmission Date: 20191004
  Serious: Yes (Hospitalization, Other)
  Sender: FDA-Public Use
  Company Number: TR-AMGEN-TURSP2019132259

PATIENT
  Age: 41 Year
  Sex: Female
  Weight: 71 kg

DRUGS (4)
  1. MIMPARA [Suspect]
     Active Substance: CINACALCET HYDROCHLORIDE
     Indication: HYPERPARATHYROIDISM SECONDARY
     Dosage: 60 MILLIGRAM
     Route: 048
     Dates: start: 20190318, end: 20190508
  2. ANTAX [HYDROCORTISONE SODIUM PHOSPHATE] [Concomitant]
     Indication: HYPERPHOSPHATAEMIA
     Dosage: 1000 MILLIGRAM, QD
     Dates: start: 20190325
  3. FOLBIOL [Concomitant]
     Active Substance: FOLIC ACID
     Indication: ANAEMIA
     Dosage: 5 MILLIGRAM, QD
     Dates: start: 20100610
  4. MIMPARA [Suspect]
     Active Substance: CINACALCET HYDROCHLORIDE
     Dosage: 60 MILLIGRAM
     Route: 048
     Dates: start: 2019

REACTIONS (1)
  - Parathyroid tumour benign [Recovered/Resolved]

NARRATIVE: CASE EVENT DATE: 20190514
